FAERS Safety Report 4458225-5 (Version None)
Quarter: 2004Q3

REPORT INFORMATION
  Report Type: 
  Country: None (occurrence: None)
  Receive Date: 20040922
  Receipt Date: 20040909
  Transmission Date: 20050211
  Serious: Yes (Hospitalization)
  Sender: FDA-Public Use
  Company Number: RS004087-F

PATIENT
  Age: 47 Year
  Sex: Female
  Weight: 77 kg

DRUGS (11)
  1. RABEPRAZOLE SODIUM [Suspect]
     Indication: GASTRIC DISORDER
     Dosage: ORAL
     Route: 048
     Dates: start: 20030101, end: 20030101
  2. RABEPRAZOLE SODIUM [Suspect]
     Indication: PROPHYLAXIS
     Dosage: ORAL
     Route: 048
     Dates: start: 20030101, end: 20030101
  3. PROPOFAN (PROPOFAN) [Suspect]
     Dosage: ORAL
     Route: 048
     Dates: start: 20030101, end: 20030101
  4. PROZAC [Suspect]
     Dosage: ORAL
     Route: 048
     Dates: start: 20030101, end: 20030101
  5. PIROXICAM [Suspect]
     Dosage: ORAL
     Route: 048
     Dates: start: 20030101, end: 20030101
  6. ADVIL [Suspect]
     Dates: start: 20030319, end: 20030101
  7. NEXEN (NIMESULIDE) [Concomitant]
  8. FURADANTIN [Concomitant]
  9. CEFUROXIME AXETIL [Concomitant]
  10. ACETAMINOPHEN [Concomitant]
  11. VIRLIX (CETIRIZINE HYDROCHLORIDE) [Concomitant]

REACTIONS (12)
  - CHOLANGITIS SCLEROSING [None]
  - CYTOLYTIC HEPATITIS [None]
  - ESCHERICHIA URINARY TRACT INFECTION [None]
  - HEPATITIS CHOLESTATIC [None]
  - HYPOKALAEMIA [None]
  - HYPONATRAEMIA [None]
  - INFLAMMATION [None]
  - LYMPHOPENIA [None]
  - PRURITUS [None]
  - PYREXIA [None]
  - STEVENS-JOHNSON SYNDROME [None]
  - SYSTEMIC LUPUS ERYTHEMATOSUS [None]
